FAERS Safety Report 8389383 (Version 2)
Quarter: 2012Q4

REPORT INFORMATION
  Report Type: Spontaneous
  Country: JP (occurrence: None)
  Receive Date: 20120117
  Receipt Date: 20121025
  Transmission Date: 20130627
  Serious: Yes (Death, Other)
  Sender: FDA-Public Use
  Company Number: 2012011431

PATIENT
  Sex: Female

DRUGS (1)
  1. PHOTOFRIN [Suspect]
     Indication: OESOPHAGEAL CARCINOMA
     Dosage: INTRAVENOUS
     Route: 042

REACTIONS (4)
  - Oesophageal fistula [None]
  - Post procedural haemorrhage [None]
  - Mediastinitis [None]
  - Aorto-oesophageal fistula [None]
